FAERS Safety Report 18086313 (Version 3)
Quarter: 2020Q3

REPORT INFORMATION
  Report Type: Report from Study
  Country: None (occurrence: US)
  Receive Date: 20200728
  Receipt Date: 20200814
  Transmission Date: 20201103
  Serious: Yes (Other)
  Sender: FDA-Public Use
  Company Number: US-ABBVIE-20K-163-3498967-00

PATIENT
  Age: 76 Year
  Sex: Female

DRUGS (3)
  1. SYNTHROID [Suspect]
     Active Substance: LEVOTHYROXINE SODIUM
     Indication: PRODUCT USED FOR UNKNOWN INDICATION
     Route: 048
     Dates: start: 2012
  2. SYNTHROID [Suspect]
     Active Substance: LEVOTHYROXINE SODIUM
     Dosage: 1 AND 1/4 TAB
     Route: 048
     Dates: start: 201909
  3. SYNTHROID [Suspect]
     Active Substance: LEVOTHYROXINE SODIUM
     Route: 048
     Dates: start: 20200725, end: 202008

REACTIONS (16)
  - Thyroidectomy [Unknown]
  - Pain of skin [Unknown]
  - Eye disorder [Unknown]
  - Lacrimation increased [Recovered/Resolved]
  - Chest pain [Unknown]
  - Pain [Unknown]
  - Joint stiffness [Unknown]
  - Musculoskeletal stiffness [Unknown]
  - Muscle spasms [Unknown]
  - Headache [Unknown]
  - Drug ineffective [Unknown]
  - Disturbance in attention [Unknown]
  - Hypertension [Unknown]
  - Agitation [Unknown]
  - Chest discomfort [Recovered/Resolved]
  - Lethargy [Unknown]

NARRATIVE: CASE EVENT DATE: 202008
